FAERS Safety Report 7655521-5 (Version None)
Quarter: 2011Q3

REPORT INFORMATION
  Report Type: 
  Country: None (occurrence: None)
  Receive Date: 20110728
  Receipt Date: 20110718
  Transmission Date: 20111222
  Serious: Yes (Hospitalization)
  Sender: FDA-Public Use
  Company Number: 2011134994

PATIENT
  Age: 72 Year
  Sex: Female

DRUGS (2)
  1. DALTEPARIN SODIUM [Suspect]
     Indication: LUNG NEOPLASM MALIGNANT
     Dosage: 5000 IU, UNK
     Dates: start: 20110614, end: 20110617
  2. ZOMETA [Concomitant]

REACTIONS (3)
  - HYPOTENSION [None]
  - ATRIAL FIBRILLATION [None]
  - MUSCULOSKELETAL PAIN [None]
